FAERS Safety Report 8793918 (Version 3)
Quarter: 2013Q3

REPORT INFORMATION
  Report Type: Spontaneous
  Country: US (occurrence: US)
  Receive Date: 20120918
  Receipt Date: 20130903
  Transmission Date: 20140515
  Serious: Yes (Other)
  Sender: FDA-Public Use
  Company Number: US-009507513-1209USA005742

PATIENT
  Age: 33 Year
  Sex: Male
  Weight: 117.91 kg

DRUGS (6)
  1. SAPHRIS [Suspect]
     Dosage: 5 MG, BID
     Route: 048
     Dates: start: 20120528
  2. SAPHRIS [Suspect]
     Dosage: 10 MG, HS
     Route: 048
     Dates: end: 20120617
  3. BENZTROPINE MESYLATE [Concomitant]
     Indication: ADVERSE DRUG REACTION
     Dosage: 1 MG, QD
  4. HALDOL [Concomitant]
     Dosage: 5 MG, BID
  5. METHYLPHENIDATE [Concomitant]
     Dosage: 10 MG, TID
  6. PAROXETINE [Concomitant]
     Dosage: 40 MG, QD

REACTIONS (5)
  - Psychotic disorder [Not Recovered/Not Resolved]
  - Speech disorder [Not Recovered/Not Resolved]
  - Condition aggravated [Unknown]
  - Depression [Not Recovered/Not Resolved]
  - Gait disturbance [Not Recovered/Not Resolved]
